FAERS Safety Report 6033058-7 (Version None)
Quarter: 2009Q1

REPORT INFORMATION
  Report Type: 
  Country: None (occurrence: None)
  Receive Date: 20090109
  Receipt Date: 20081229
  Transmission Date: 20090719
  Serious: Yes (Life-Threatening)
  Sender: FDA-Public Use
  Company Number: JP-PFIZER INC-2008087418

PATIENT

DRUGS (15)
  1. CAMPTOSAR [Suspect]
     Indication: RECTAL CANCER
     Dosage: UNIT DOSE: 150 MG/M2; TDD: 255 MG
     Route: 042
     Dates: start: 20080827, end: 20080827
  2. CALCIUM LEVOFOLINATE [Suspect]
     Indication: RECTAL CANCER
     Dosage: UNIT DOSE: 200 MG/M2, TDD: 340 MG
     Route: 042
     Dates: start: 20080827, end: 20080827
  3. ANCARON [Suspect]
     Indication: VENTRICULAR TACHYCARDIA
     Dosage: 100 MG
     Route: 048
     Dates: end: 20080906
  4. SEROTONE [Concomitant]
     Indication: PREMEDICATION
     Dosage: 10MG, 1 DF
     Route: 042
     Dates: start: 20080827, end: 20080830
  5. SEROTONE [Concomitant]
     Indication: NAUSEA
     Dosage: 1 DF, UNK
  6. DEXAMETHASONE SODIUM PHOSPHATE [Concomitant]
     Indication: PREMEDICATION
     Dosage: 8 MG
     Route: 041
     Dates: start: 20080827, end: 20080827
  7. DEXAMETHASONE SODIUM PHOSPHATE [Concomitant]
     Indication: NAUSEA
     Dosage: 4 MG
     Route: 041
     Dates: start: 20080827, end: 20080827
  8. ARTIST [Concomitant]
     Indication: HYPERTENSION
     Dosage: 5 MG, 2X/DAY
     Route: 048
     Dates: end: 20080906
  9. VALSARTAN [Concomitant]
     Indication: HYPERTENSION
     Dosage: 40 MG
     Route: 048
     Dates: end: 20080906
  10. LASIX [Concomitant]
     Indication: HYPERTENSION
     Dosage: 40 MG
     Route: 048
     Dates: end: 20080906
  11. CRESTOR [Concomitant]
     Indication: HYPERCHOLESTEROLAEMIA
     Dosage: 2.5 MG
     Route: 048
     Dates: end: 20080906
  12. BERIZYM [Concomitant]
     Indication: OXYGEN SUPPLEMENTATION
     Dosage: 0.7 G, 3X/DAY
     Route: 048
     Dates: start: 20071021, end: 20080906
  13. PRIMPERAN TAB [Concomitant]
     Indication: OXYGEN SUPPLEMENTATION
     Dosage: 1 DF, 3X/DAY
     Route: 048
     Dates: start: 20071031, end: 20080906
  14. ALL OTHER THERAPEUTIC PRODUCTS [Concomitant]
     Indication: OXYGEN SUPPLEMENTATION
     Dosage: 1G, 3X/DAY
     Route: 048
     Dates: start: 20071031, end: 20080906
  15. GASTER [Concomitant]
     Indication: GASTRITIS EROSIVE
     Dosage: 20 MG, 2X/DAY
     Route: 048
     Dates: start: 20080826, end: 20080906

REACTIONS (5)
  - BLOOD PRESSURE DECREASED [None]
  - LEUKOPENIA [None]
  - NEUTROPENIA [None]
  - PYREXIA [None]
  - VENTRICULAR TACHYCARDIA [None]
